FAERS Safety Report 5515068-9 (Version None)
Quarter: 2007Q4

REPORT INFORMATION
  Report Type: 
  Country: None (occurrence: None)
  Receive Date: 20071113
  Receipt Date: 20061214
  Transmission Date: 20080405
  Serious: No
  Sender: FDA-Public Use
  Company Number: A0631598A

PATIENT
  Sex: Female

DRUGS (3)
  1. COREG [Suspect]
     Indication: LEFT VENTRICULAR DYSFUNCTION
     Dosage: 3.125MG TWICE PER DAY
     Route: 048
  2. ASPIRIN [Concomitant]
  3. ALTACE [Concomitant]

REACTIONS (1)
  - RENAL PAIN [None]
